FAERS Safety Report 4785673-6 (Version None)
Quarter: 2005Q3

REPORT INFORMATION
  Report Type: 
  Country: None (occurrence: None)
  Receive Date: 20050930
  Receipt Date: 20050930
  Transmission Date: 20060218
  Serious: No
  Sender: FDA-Public Use
  Company Number: None

PATIENT
  Age: 45 Year
  Sex: Female

DRUGS (11)
  1. RAMIPRIL [Suspect]
  2. LEVOXYL [Concomitant]
  3. ULTRAM [Concomitant]
  4. PATANOL [Concomitant]
  5. LAMICTAL [Concomitant]
  6. ABILIFY [Concomitant]
  7. CLARITIN [Concomitant]
  8. PROZAC [Concomitant]
  9. VERAPAMIL [Concomitant]
  10. HYDROCHLOROTHIAZIDE [Concomitant]
  11. ALTACE [Concomitant]

REACTIONS (2)
  - ANGIONEUROTIC OEDEMA [None]
  - SWELLING FACE [None]
